FAERS Safety Report 5740485-1 (Version None)
Quarter: 2008Q2

REPORT INFORMATION
  Report Type: 
  Country: None (occurrence: None)
  Receive Date: 20080516
  Receipt Date: 20080505
  Transmission Date: 20081010
  Serious: Yes (Congenital Anomaly)
  Sender: FDA-Public Use
  Company Number: NL-NOVOPROD-275206

PATIENT
  Sex: Female
  Weight: 4.2 kg

DRUGS (2)
  1. NOVORAPID FLEXPEN [Suspect]
  2. LEVEMIR [Suspect]
     Indication: MATERNAL DRUGS AFFECTING FOETUS

REACTIONS (3)
  - ATRIAL SEPTAL DEFECT [None]
  - MACROSOMIA [None]
  - VENTRICULAR SEPTAL DEFECT [None]
